APPROVED DRUG PRODUCT: HYDROXYZINE HYDROCHLORIDE
Active Ingredient: HYDROXYZINE HYDROCHLORIDE
Strength: 50MG/ML
Dosage Form/Route: INJECTABLE;INJECTION
Application: A087273 | Product #002
Applicant: ALTANA INC
Approved: Apr 20, 1982 | RLD: No | RS: No | Type: DISCN